FAERS Safety Report 5123653-1 (Version None)
Quarter: 2006Q4

REPORT INFORMATION
  Report Type: 
  Country: None (occurrence: None)
  Receive Date: 20060910
  Receipt Date: 20050720
  Transmission Date: 20070319
  Serious: Yes (Other)
  Sender: FDA-Public Use
  Company Number: US_980910758

PATIENT
  Age: 64 Year
  Sex: Female
  Weight: 66.2 kg

DRUGS (11)
  1. HUMALOG (LISPRO 25% NPL) VAIL [Suspect]
     Indication: DRUG USE FOR UNKNOWN INDICATION
     Dates: start: 20040601
  2. HUMALOG [Suspect]
     Indication: DIABETES MELLITUS
     Dosage: 3 U, 2/D , SUBCUTANEOUS
     Route: 058
     Dates: start: 19960801, end: 20040101
  3. HUMULIN N [Suspect]
     Indication: DIABETES MELLITUS
     Dosage: 13 U,  2/D , SUBCUTANEOUS
     Route: 058
     Dates: start: 19960801
  4. ILETIN [Suspect]
     Indication: DIABETES MELLITUS
     Dosage: 20 U, DAILY (1/D),
     Dates: start: 19590101, end: 19960101
  5. ILETIN [Suspect]
     Indication: DIABETES MELLITUS
     Dosage: SUBCUTANEOUS
     Route: 058
     Dates: end: 19960101
  6. HUMULIN N [Suspect]
     Indication: DRUG USE FOR UNKNOWN INDICATION
     Dates: start: 19970101, end: 20040101
  7. INSULIN (INSULIN ANIMAL ) VIAL [Suspect]
     Indication: DRUG USE FOR UNKNOWN INDICATION
  8. SYNTHROID [Concomitant]
  9. LANTUS [Concomitant]
  10. CORTISONE ACETATE [Concomitant]
  11. SINUTAB [Concomitant]

REACTIONS (10)
  - BLOOD GLUCOSE DECREASED [None]
  - BLOOD GLUCOSE FLUCTUATION [None]
  - COMA [None]
  - DRUG INEFFECTIVE [None]
  - FAT TISSUE INCREASED [None]
  - HYPERGLYCAEMIA [None]
  - HYPOGLYCAEMIA UNAWARENESS [None]
  - INJECTION SITE REACTION [None]
  - WEIGHT DECREASED [None]
  - WEIGHT INCREASED [None]
